FAERS Safety Report 17638314 (Version 1)
Quarter: 2020Q2

REPORT INFORMATION
  Report Type: Spontaneous
  Country: GB (occurrence: GB)
  Receive Date: 20200407
  Receipt Date: 20200407
  Transmission Date: 20200713
  Serious: Yes (Life-Threatening, Hospitalization, Other)
  Sender: FDA-Public Use
  Company Number: GB-GLAXOSMITHKLINE-GB2020057835

PATIENT
  Age: 67 Year
  Sex: Female
  Weight: 119 kg

DRUGS (12)
  1. CEFUROXIME SODIUM. [Suspect]
     Active Substance: CEFUROXIME SODIUM
     Indication: ANTIBIOTIC PROPHYLAXIS
     Dosage: 1.5 G
     Route: 042
     Dates: start: 20200323, end: 20200323
  2. ALFENTANIL. [Suspect]
     Active Substance: ALFENTANIL
     Indication: ANALGESIC THERAPY
     Dosage: 250 ?G
     Route: 042
     Dates: start: 20200323, end: 20200323
  3. MIDAZOLAM. [Suspect]
     Active Substance: MIDAZOLAM
     Indication: SEDATION
     Dosage: 1 MG
     Route: 042
     Dates: start: 20200323, end: 20200323
  4. NAPROXEN. [Concomitant]
     Active Substance: NAPROXEN
     Indication: PRODUCT USED FOR UNKNOWN INDICATION
     Dosage: UNK
     Route: 065
  5. BENDROFLUMETHIAZIDE [Concomitant]
     Active Substance: BENDROFLUMETHIAZIDE
     Indication: PRODUCT USED FOR UNKNOWN INDICATION
     Dosage: UNK
     Route: 065
  6. LOSARTAN. [Concomitant]
     Active Substance: LOSARTAN
     Indication: PRODUCT USED FOR UNKNOWN INDICATION
     Dosage: UNK
     Route: 065
  7. VENSIR XL [Concomitant]
     Active Substance: VENLAFAXINE HYDROCHLORIDE
     Indication: PRODUCT USED FOR UNKNOWN INDICATION
     Dosage: UNK
     Route: 065
  8. FLUCLOXACILLIN [Concomitant]
     Active Substance: FLUCLOXACILLIN
     Indication: PRODUCT USED FOR UNKNOWN INDICATION
     Dosage: UNK
     Route: 065
  9. TEICOPLANIN [Suspect]
     Active Substance: TEICOPLANIN
     Indication: ANTIBIOTIC PROPHYLAXIS
     Dosage: 400 MG
     Route: 042
     Dates: start: 20200323, end: 20200323
  10. ADIZEM [Concomitant]
     Active Substance: DILTIAZEM HYDROCHLORIDE
     Indication: PRODUCT USED FOR UNKNOWN INDICATION
     Dosage: UNK
     Route: 065
  11. MAXITRAM SR [Concomitant]
     Active Substance: TRAMADOL HYDROCHLORIDE
     Indication: PRODUCT USED FOR UNKNOWN INDICATION
     Dosage: UNK
     Route: 065
  12. DERMOL (BENZALKONIUM CHLORIDE + CHLORHEXIDINE HCL + LIQUID PARAFFIN + [Concomitant]
     Indication: PRODUCT USED FOR UNKNOWN INDICATION
     Dosage: UNK
     Route: 065

REACTIONS (1)
  - Anaphylactic reaction [Recovering/Resolving]

NARRATIVE: CASE EVENT DATE: 20200323
